FAERS Safety Report 9698066 (Version 4)
Quarter: 2015Q2

REPORT INFORMATION
  Report Type: Spontaneous
  Country: US (occurrence: US)
  Receive Date: 20131120
  Receipt Date: 20150429
  Transmission Date: 20150821
  Serious: Yes (Hospitalization)
  Sender: FDA-Public Use
  Company Number: US-BAYER-2013-139104

PATIENT
  Age: 25 Year
  Sex: Female
  Weight: 80.27 kg

DRUGS (5)
  1. MIRENA [Suspect]
     Active Substance: LEVONORGESTREL
     Indication: CONTRACEPTION
     Dosage: 20 MCG/24HR, CONT
     Route: 015
     Dates: start: 20120731, end: 20120911
  2. LEVOTHYROXINE [Concomitant]
     Active Substance: LEVOTHYROXINE
     Indication: HYPOTHYROIDISM
     Dosage: UNK
     Dates: start: 2008
  3. IBUPROFEN. [Concomitant]
     Active Substance: IBUPROFEN
     Dosage: 600 MG, EVERY 6 HOURS
     Route: 048
  4. DOCUSATE SODIUM. [Concomitant]
     Active Substance: DOCUSATE SODIUM
     Dosage: 100 MG, BID
     Route: 048
  5. PRENATAL VITAMINS [Concomitant]
     Active Substance: VITAMINS
     Dosage: ONE TAB DAILY
     Route: 048

REACTIONS (10)
  - Uterine perforation [None]
  - Abdominal pain lower [None]
  - Emotional distress [None]
  - Anxiety [None]
  - Anhedonia [None]
  - General physical health deterioration [None]
  - Injury [None]
  - Abdominal pain upper [None]
  - Device issue [None]
  - Vision blurred [None]

NARRATIVE: CASE EVENT DATE: 201208
